FAERS Safety Report 5045369-2 (Version None)
Quarter: 2006Q3

REPORT INFORMATION
  Report Type: 
  Country: None (occurrence: None)
  Receive Date: 20060707
  Receipt Date: 20060512
  Transmission Date: 20061208
  Serious: No
  Sender: FDA-Public Use
  Company Number: US-GLAXOSMITHKLINE-A0605396A

PATIENT
  Age: 72 Year
  Sex: Female

DRUGS (12)
  1. LOTRONEX [Suspect]
     Indication: IRRITABLE BOWEL SYNDROME
     Dosage: 1MG PER DAY
     Route: 048
     Dates: start: 20060501
  2. GLUCOVANCE [Concomitant]
  3. LASIX [Concomitant]
  4. COZAAR [Concomitant]
  5. PREMARIN [Concomitant]
  6. ASPIRIN [Concomitant]
  7. POTASSIUM [Concomitant]
  8. VITAMIN B6 [Concomitant]
  9. CENTRUM SILVER [Concomitant]
  10. TOPROL-XL [Concomitant]
  11. DIGOXIN [Concomitant]
  12. BENEFIBER [Concomitant]

REACTIONS (3)
  - CONSTIPATION [None]
  - HEART RATE IRREGULAR [None]
  - PALPITATIONS [None]
